FAERS Safety Report 15313495 (Version 2)
Quarter: 2018Q3

REPORT INFORMATION
  Report Type: Spontaneous
  Country: RU (occurrence: RU)
  Receive Date: 20180824
  Receipt Date: 20180921
  Transmission Date: 20181010
  Serious: Yes (Other)
  Sender: FDA-Public Use
  Company Number: RU-ALEXION-A201810659

PATIENT
  Age: 25 Year
  Sex: Female
  Weight: 36 kg

DRUGS (4)
  1. SOLIRIS [Suspect]
     Active Substance: ECULIZUMAB
     Indication: ATYPICAL HAEMOLYTIC URAEMIC SYNDROME
     Dosage: UNK
     Route: 065
     Dates: start: 20170127
  2. SOLIRIS [Suspect]
     Active Substance: ECULIZUMAB
     Dosage: 1200 MG, Q2W VIA DROPPER
     Route: 042
     Dates: start: 20170224
  3. SOLIRIS [Suspect]
     Active Substance: ECULIZUMAB
     Dosage: 1200 MG, UNK
     Route: 065
  4. SOLIRIS [Suspect]
     Active Substance: ECULIZUMAB
     Dosage: 900 MG, QW FOR 4 WEEKS VIA DROPPER
     Route: 042
     Dates: start: 20170127, end: 20170217

REACTIONS (29)
  - Left ventricular dilatation [Unknown]
  - Blood alkaline phosphatase increased [Unknown]
  - Hydrothorax [Unknown]
  - Sinus tachycardia [Unknown]
  - Dilatation atrial [Unknown]
  - Red blood cell count decreased [Unknown]
  - Blood creatinine increased [Unknown]
  - High density lipoprotein decreased [Unknown]
  - Haemoglobin decreased [Unknown]
  - Ascites [Unknown]
  - Thrombocytopenia [Not Recovered/Not Resolved]
  - Weight decreased [Not Recovered/Not Resolved]
  - Left ventricular hypertrophy [Unknown]
  - Myocardial fibrosis [Unknown]
  - Hyperoxaluria [Unknown]
  - Haematocrit decreased [Unknown]
  - Ejection fraction decreased [Unknown]
  - Crystalluria [Unknown]
  - Nephrosclerosis [Unknown]
  - Blood corticotrophin abnormal [Unknown]
  - Blood urea increased [Unknown]
  - Glomerular filtration rate decreased [Unknown]
  - Anaemia [Not Recovered/Not Resolved]
  - Nephrolithiasis [Unknown]
  - Ventricular hypokinesia [Unknown]
  - Pericardial effusion [Unknown]
  - Decreased appetite [Not Recovered/Not Resolved]
  - Nephroptosis [Unknown]
  - Blood sodium increased [Unknown]

NARRATIVE: CASE EVENT DATE: 20180810
